FAERS Safety Report 4875112-9 (Version None)
Quarter: 2006Q1

REPORT INFORMATION
  Report Type: 
  Country: None (occurrence: None)
  Receive Date: 20060109
  Receipt Date: 20060105
  Transmission Date: 20060701
  Serious: Yes (Hospitalization)
  Sender: FDA-Public Use
  Company Number: JP-JPN-A200600018

PATIENT
  Age: 21 Year
  Sex: Female

DRUGS (5)
  1. FLOLAN [Suspect]
     Indication: PULMONARY HYPERTENSION
     Route: 042
     Dates: start: 20001208
  2. ALLEGRA [Concomitant]
     Route: 048
  3. ALESION [Concomitant]
     Route: 048
  4. DEPAS [Concomitant]
     Route: 048
  5. PURSENNID [Concomitant]
     Route: 048

REACTIONS (1)
  - PULMONARY HAEMORRHAGE [None]
